FAERS Safety Report 14676661 (Version 1)
Quarter: 2018Q1

REPORT INFORMATION
  Report Type: Spontaneous
  Country: DK (occurrence: DK)
  Receive Date: 20180324
  Receipt Date: 20180324
  Transmission Date: 20180509
  Serious: Yes (Hospitalization, Disabling)
  Sender: FDA-Public Use
  Company Number: DK-ROCHE-2090546

PATIENT
  Age: 43 Year
  Sex: Female

DRUGS (1)
  1. BONVIVA [Suspect]
     Active Substance: IBANDRONATE SODIUM
     Indication: OSTEOPOROSIS
     Dosage: DATE OF LAST DOSE ON 01/JAN/2016
     Route: 042
     Dates: start: 20090101

REACTIONS (9)
  - Back pain [Not Recovered/Not Resolved]
  - Atypical femur fracture [Recovering/Resolving]
  - Loss of personal independence in daily activities [Not Recovered/Not Resolved]
  - Bone disorder [Unknown]
  - Arthralgia [Not Recovered/Not Resolved]
  - Mobility decreased [Not Recovered/Not Resolved]
  - Pain in extremity [Not Recovered/Not Resolved]
  - Bone fissure [Recovering/Resolving]
  - Fracture treatment [Recovered/Resolved]

NARRATIVE: CASE EVENT DATE: 20160101
